FAERS Safety Report 5049461-8 (Version None)
Quarter: 2006Q2

REPORT INFORMATION
  Report Type: 
  Country: None (occurrence: None)
  Receive Date: 20060613
  Receipt Date: 20060223
  Transmission Date: 20061013
  Serious: No
  Sender: FDA-Public Use
  Company Number: 2006-00424

PATIENT
  Age: 62 Year
  Sex: Male
  Weight: 52.2 kg

DRUGS (5)
  1. VELCADE [Suspect]
     Indication: MULTIPLE MYELOMA
     Dosage: INTRAVENOUS
     Route: 042
     Dates: start: 20050901
  2. COUMADIN [Concomitant]
  3. LEVOTHYROXINE SODIUM [Concomitant]
  4. SOTALOL (SOTALOL) [Concomitant]
  5. VICODIN [Concomitant]

REACTIONS (6)
  - DIPLOPIA [None]
  - EAR DISCOMFORT [None]
  - HEADACHE [None]
  - LIGHT CHAIN ANALYSIS INCREASED [None]
  - SINUSITIS [None]
  - WHITE BLOOD CELL COUNT DECREASED [None]
